FAERS Safety Report 8029667-6 (Version None)
Quarter: 2012Q1

REPORT INFORMATION
  Report Type: 
  Country: None (occurrence: None)
  Receive Date: 20120109
  Receipt Date: 20111230
  Transmission Date: 20120608
  Serious: Yes (Death, Disabling, Congenital Anomaly)
  Sender: FDA-Public Use
  Company Number: FR-PFIZER INC-2012004436

PATIENT
  Sex: Male

DRUGS (4)
  1. LOVENOX [Suspect]
     Indication: HYPERTROPHIC CARDIOMYOPATHY
     Dosage: 8000 IU, 2X/DAY
     Route: 064
  2. CELESTONE [Concomitant]
     Dosage: UNK
     Dates: start: 20111110, end: 20111111
  3. CORDARONE [Suspect]
     Indication: HYPERTROPHIC CARDIOMYOPATHY
     Dosage: 200 MG, DAILY
     Route: 064
  4. TENORMIN [Suspect]
     Indication: HYPERTROPHIC CARDIOMYOPATHY
     Dosage: 100 MG, DAILY
     Route: 064

REACTIONS (2)
  - MATERNAL EXPOSURE DURING PREGNANCY [None]
  - FOETAL GROWTH RESTRICTION [None]
